FAERS Safety Report 5583266-4 (Version None)
Quarter: 2008Q1

REPORT INFORMATION
  Report Type: 
  Country: None (occurrence: None)
  Receive Date: 20080107
  Receipt Date: 20071227
  Transmission Date: 20080703
  Serious: Yes (Hospitalization, Other)
  Sender: FDA-Public Use
  Company Number: US-ELI_LILLY_AND_COMPANY-US200712004959

PATIENT
  Sex: Female
  Weight: 47.166 kg

DRUGS (3)
  1. CYMBALTA [Suspect]
     Indication: MENTAL DISORDER
     Dosage: 30 MG, DAILY (1/D)
     Dates: start: 20071123, end: 20071216
  2. LASIX [Concomitant]
     Dosage: 1 D/F, UNK
  3. OTHER ANTITHROMBOTIC AGENTS [Concomitant]

REACTIONS (10)
  - BLOOD CREATININE INCREASED [None]
  - BLOOD UREA INCREASED [None]
  - DEHYDRATION [None]
  - LETHARGY [None]
  - NAUSEA [None]
  - RENAL IMPAIRMENT [None]
  - SOMNOLENCE [None]
  - ULCER [None]
  - UNRESPONSIVE TO STIMULI [None]
  - VOMITING [None]
